FAERS Safety Report 8420938-8 (Version None)
Quarter: 2012Q2

REPORT INFORMATION
  Report Type: 
  Country: None (occurrence: None)
  Receive Date: 20120608
  Receipt Date: 20120605
  Transmission Date: 20120825
  Serious: Yes (Other)
  Sender: FDA-Public Use
  Company Number: US-PFIZER INC-2011051532

PATIENT
  Sex: Female
  Weight: 54.422 kg

DRUGS (11)
  1. VALIUM [Concomitant]
     Indication: PANIC ATTACK
  2. TORSEMIDE [Concomitant]
     Dosage: 10 MG, 1X/DAY
  3. FLUTICASONE [Concomitant]
     Indication: RHINORRHOEA
     Dosage: UNK
     Route: 045
  4. SPIRONOLACTONE [Concomitant]
     Dosage: 50 MG, 1X/DAY
  5. VALIUM [Concomitant]
     Indication: ANXIETY
     Dosage: 10 MG, 1X/DAY
     Route: 048
  6. CHANTIX [Suspect]
     Indication: SMOKING CESSATION THERAPY
     Dosage: 0.5 MG, 1X/DAY
     Route: 048
     Dates: start: 20110203, end: 20110201
  7. CHANTIX [Suspect]
     Dosage: UNK
     Route: 048
     Dates: start: 20110201, end: 20110210
  8. HYDROCODONE [Concomitant]
     Dosage: 7.5 MG, 3X/DAY
     Route: 048
  9. METHOCARBAMOL [Concomitant]
     Indication: MUSCLE RELAXANT THERAPY
     Dosage: 750 MG, 2X/DAY
  10. FLUTICASONE [Concomitant]
     Indication: SINUS DISORDER
  11. CHANTIX [Suspect]
     Dosage: 0.5 MG, UNK
     Route: 048
     Dates: start: 20110201, end: 20110201

REACTIONS (7)
  - PHARYNGEAL DISORDER [None]
  - MALAISE [None]
  - HALLUCINATION [None]
  - AMNESIA [None]
  - ABNORMAL DREAMS [None]
  - BLINDNESS [None]
  - PLATELET COUNT DECREASED [None]
